FAERS Safety Report 13614987 (Version 1)
Quarter: 2017Q2

REPORT INFORMATION
  Report Type: Spontaneous
  Country: US (occurrence: US)
  Receive Date: 20170606
  Receipt Date: 20170606
  Transmission Date: 20170830
  Serious: Yes (Hospitalization)
  Sender: FDA-Public Use
  Company Number: US-ASTRAZENECA-2017SE58742

PATIENT
  Age: 54 Year
  Sex: Male

DRUGS (2)
  1. AMARYL [Concomitant]
     Active Substance: GLIMEPIRIDE
  2. BYDUREON [Suspect]
     Active Substance: EXENATIDE
     Indication: TYPE 2 DIABETES MELLITUS
     Route: 065

REACTIONS (2)
  - Treatment noncompliance [Unknown]
  - Hypoglycaemia [Unknown]
